FAERS Safety Report 24674611 (Version 1)
Quarter: 2024Q4

REPORT INFORMATION
  Report Type: Spontaneous
  Country: EG (occurrence: EG)
  Receive Date: 20241128
  Receipt Date: 20241128
  Transmission Date: 20250115
  Serious: Yes (Other)
  Sender: HIKMA
  Company Number: EG-HIKMA PHARMACEUTICALS-EG-H14001-24-10898

PATIENT
  Age: 69 Year
  Sex: Female
  Weight: 70 kg

DRUGS (6)
  1. PACLITAXEL [Suspect]
     Active Substance: PACLITAXEL
     Indication: Breast cancer
     Dosage: 120 MILLIGRAM, WEEKLY
     Route: 041
     Dates: start: 20240717
  2. PACLITAXEL [Suspect]
     Active Substance: PACLITAXEL
     Dosage: 120 MILLIGRAM, 13 DOSE
     Route: 041
     Dates: start: 20241017
  3. DEXAMETHASONE [Concomitant]
     Active Substance: DEXAMETHASONE
     Indication: Chemotherapy side effect prophylaxis
     Dosage: UNKNOWN
     Route: 065
  4. ONDAMETIC [Concomitant]
     Indication: Chemotherapy side effect prophylaxis
     Dosage: UNKNOWN
     Route: 065
  5. PIRAFENE [Concomitant]
     Indication: Chemotherapy side effect prophylaxis
     Dosage: UNKNOWN
     Route: 065
  6. ZOMEGIPRAL [Concomitant]
     Indication: Chemotherapy side effect prophylaxis
     Dosage: UNKNOWN
     Route: 065

REACTIONS (3)
  - Dermatitis allergic [Recovering/Resolving]
  - Neuropathy peripheral [Recovering/Resolving]
  - Drug hypersensitivity [Recovering/Resolving]
